FAERS Safety Report 16856496 (Version 1)
Quarter: 2019Q3

REPORT INFORMATION
  Report Type: Spontaneous
  Country: JP (occurrence: JP)
  Receive Date: 20190926
  Receipt Date: 20190926
  Transmission Date: 20191005
  Serious: Yes (Life-Threatening, Other)
  Sender: FDA-Public Use
  Company Number: JP-PFIZER INC-2019402276

PATIENT
  Age: 71 Year
  Sex: Female
  Weight: 53 kg

DRUGS (7)
  1. OXALIPLATIN. [Suspect]
     Active Substance: OXALIPLATIN
     Indication: COLORECTAL CANCER METASTATIC
     Dosage: 60 MG/M2, CYCLIC
     Dates: start: 2018
  2. 5-FLUOROURACIL [FLUOROURACIL] [Suspect]
     Active Substance: FLUOROURACIL
     Dosage: 2400 MG/M2, CYCLIC (46-H INJECTION) (PLUS BV (5 MG/KG [264 MG]))
     Dates: start: 2018
  3. CALCIUM FOLINATE [Suspect]
     Active Substance: LEUCOVORIN CALCIUM
     Indication: COLORECTAL CANCER METASTATIC
     Dosage: 200 MG/M2, CYCLIC
     Dates: start: 2018
  4. BEVACIZUMAB. [Suspect]
     Active Substance: BEVACIZUMAB
     Indication: COLORECTAL CANCER METASTATIC
     Dosage: 5 MG/KG, CYCLIC (ALONG WITH 5-FU: 2,400 MG/M2 [3,400 MG])
     Dates: start: 2018
  5. 5-FLUOROURACIL [FLUOROURACIL] [Suspect]
     Active Substance: FLUOROURACIL
     Dosage: 1920 MG/M2, CYCLIC (46-H INJECTION) (1,920 MG/M2 [2,720 MG])
     Dates: start: 2018
  6. 5-FLUOROURACIL [FLUOROURACIL] [Suspect]
     Active Substance: FLUOROURACIL
     Indication: COLORECTAL CANCER METASTATIC
     Dosage: 400 MG/M2, CYCLIC (BOLUS 5-FU: 400 MG/M2 [576 MG])
     Dates: start: 2018
  7. 5-FLUOROURACIL [FLUOROURACIL] [Suspect]
     Active Substance: FLUOROURACIL
     Dosage: 320 MG/M2, CYCLIC (DOSE REDUCTION) (BOLUS) (320 MG/M2 [460 MG])
     Dates: start: 2018

REACTIONS (4)
  - Bone marrow failure [Unknown]
  - Fatigue [Unknown]
  - Neutropenia [Unknown]
  - Thrombocytopenia [Unknown]

NARRATIVE: CASE EVENT DATE: 2018
